FAERS Safety Report 20010865 (Version 1)
Quarter: 2021Q4

REPORT INFORMATION
  Report Type: Spontaneous
  Country: CA (occurrence: CA)
  Receive Date: 20211028
  Receipt Date: 20211028
  Transmission Date: 20220303
  Serious: Yes (Disabling)
  Sender: FDA-Public Use
  Company Number: CA-TEVA-2021-CA-1969698

PATIENT
  Age: 61 Year
  Sex: Male

DRUGS (2)
  1. ATORVASTATIN [Suspect]
     Active Substance: ATORVASTATIN
     Indication: Hypercholesterolaemia
     Dosage: 20 MILLIGRAM DAILY;
     Route: 048
  2. IRBESARTAN [Suspect]
     Active Substance: IRBESARTAN
     Route: 065

REACTIONS (1)
  - Linear IgA disease [Unknown]
